FAERS Safety Report 18671434 (Version 1)
Quarter: 2020Q4

REPORT INFORMATION
  Report Type: Spontaneous
  Country: BR (occurrence: BR)
  Receive Date: 20201228
  Receipt Date: 20201228
  Transmission Date: 20210114
  Serious: Yes (Death)
  Sender: FDA-Public Use
  Company Number: BR-PFIZER INC-2020509782

PATIENT
  Age: 41 Year
  Sex: Male

DRUGS (1)
  1. SOMATROPIN. [Suspect]
     Active Substance: SOMATROPIN
     Indication: ECTOPIC POSTERIOR PITUITARY GLAND
     Dosage: UNK

REACTIONS (1)
  - Creutzfeldt-Jakob disease [Fatal]
